FAERS Safety Report 5275532-7 (Version None)
Quarter: 2007Q1

REPORT INFORMATION
  Report Type: 
  Country: None (occurrence: None)
  Receive Date: 20070326
  Receipt Date: 20070314
  Transmission Date: 20070707
  Serious: Yes (Other)
  Sender: FDA-Public Use
  Company Number: PHEH2007US03114

PATIENT
  Age: 69 Year
  Sex: Female

DRUGS (1)
  1. ENABLEX [Suspect]
     Indication: HYPERTONIC BLADDER
     Dosage: 15 MG, QD
     Route: 048
     Dates: start: 20070313

REACTIONS (2)
  - BLOOD PRESSURE DECREASED [None]
  - FEELING ABNORMAL [None]
